FAERS Safety Report 6971521-2 (Version None)
Quarter: 2010Q3

REPORT INFORMATION
  Report Type: 
  Country: None (occurrence: None)
  Receive Date: 20100908
  Receipt Date: 20100827
  Transmission Date: 20110219
  Serious: Yes (Hospitalization)
  Sender: FDA-Public Use
  Company Number: GXKR2010IT09863

PATIENT
  Sex: Female

DRUGS (2)
  1. KETOROLAC (NGX) [Suspect]
     Route: 065
  2. DRUG THERAPY NOS [Suspect]
     Route: 065

REACTIONS (4)
  - DYSPHONIA [None]
  - GENERALISED ERYTHEMA [None]
  - PRURITUS [None]
  - URTICARIA [None]
